FAERS Safety Report 16487121 (Version 4)
Quarter: 2019Q4

REPORT INFORMATION
  Report Type: Spontaneous
  Country: JP (occurrence: JP)
  Receive Date: 20190627
  Receipt Date: 20191121
  Transmission Date: 20200122
  Serious: Yes (Hospitalization)
  Sender: FDA-Public Use
  Company Number: JP-ASTRAZENECA-2019SE91802

PATIENT
  Age: 14156 Day
  Sex: Female
  Weight: 78 kg

DRUGS (6)
  1. PULMICORT TURBUHALER [Suspect]
     Active Substance: BUDESONIDE
     Indication: ASTHMA
     Route: 055
     Dates: start: 20190417, end: 20190529
  2. DEXTROMETHORPHAN AND PREPARATIONS [Concomitant]
  3. TSUMURA BAKUMONDOTO EXTRACT [Concomitant]
     Route: 048
     Dates: start: 20190406
  4. ACETAMINOPHEN. [Concomitant]
     Active Substance: ACETAMINOPHEN
     Route: 048
  5. PULMICORT TURBUHALER [Suspect]
     Active Substance: BUDESONIDE
     Indication: ASTHMA
     Dosage: DOSE UNKNOWN
     Route: 055
     Dates: start: 201510
  6. INAVIR [Concomitant]
     Indication: INFLUENZA
     Dosage: DOSE UNKNOWN
     Route: 055
     Dates: start: 20190404, end: 20190404

REACTIONS (3)
  - Hepatic function abnormal [Recovering/Resolving]
  - Exposure during pregnancy [Unknown]
  - Pyrexia [Recovering/Resolving]

NARRATIVE: CASE EVENT DATE: 20190509
